FAERS Safety Report 13641629 (Version 3)
Quarter: 2018Q1

REPORT INFORMATION
  Report Type: Spontaneous
  Country: US (occurrence: US)
  Receive Date: 20170612
  Receipt Date: 20180208
  Transmission Date: 20180508
  Serious: Yes (Death)
  Sender: FDA-Public Use
  Company Number: US-JNJFOC-20170609381

PATIENT
  Age: 80 Year
  Sex: Female
  Weight: 112 kg

DRUGS (15)
  1. AMIODARONE [Concomitant]
     Active Substance: AMIODARONE
  2. LOSARTAN. [Concomitant]
     Active Substance: LOSARTAN
  3. PRILOSEC [Concomitant]
     Active Substance: OMEPRAZOLE MAGNESIUM
  4. GLUCOSAMINE [Concomitant]
     Active Substance: GLUCOSAMINE
  5. IMBRUVICA [Suspect]
     Active Substance: IBRUTINIB
     Indication: DIFFUSE LARGE B-CELL LYMPHOMA
     Route: 048
     Dates: start: 20170427
  6. FUROSEMIDE. [Concomitant]
     Active Substance: FUROSEMIDE
  7. MULTIVITAMINS [Concomitant]
     Active Substance: VITAMINS
  8. LEVOTHYROXINE. [Concomitant]
     Active Substance: LEVOTHYROXINE
  9. LUBIPROSTONE [Concomitant]
     Active Substance: LUBIPROSTONE
  10. PRAVASTATIN. [Concomitant]
     Active Substance: PRAVASTATIN
  11. INSULIN ASPART [Concomitant]
     Active Substance: INSULIN ASPART
  12. LORATADINE. [Concomitant]
     Active Substance: LORATADINE
  13. OXYCODONE [Concomitant]
     Active Substance: OXYCODONE
  14. FEBUXOSTAT. [Concomitant]
     Active Substance: FEBUXOSTAT
  15. XARELTO [Concomitant]
     Active Substance: RIVAROXABAN

REACTIONS (3)
  - Off label use [Unknown]
  - Product use in unapproved indication [Unknown]
  - Disease progression [Fatal]

NARRATIVE: CASE EVENT DATE: 20170427
